FAERS Safety Report 13930715 (Version 1)
Quarter: 2017Q3

REPORT INFORMATION
  Report Type: Spontaneous
  Country: GB (occurrence: GB)
  Receive Date: 20170901
  Receipt Date: 20170901
  Transmission Date: 20171127
  Serious: Yes (Other)
  Sender: FDA-Public Use
  Company Number: GB-BAUSCH-BL-2017-025449

PATIENT
  Sex: Female

DRUGS (1)
  1. TILDIEM [Suspect]
     Active Substance: DILTIAZEM HYDROCHLORIDE
     Indication: HEART RATE INCREASED
     Route: 065
     Dates: end: 20170803

REACTIONS (3)
  - Dyspepsia [Recovered/Resolved]
  - Joint swelling [Not Recovered/Not Resolved]
  - Insomnia [Recovered/Resolved]
